FAERS Safety Report 23361628 (Version 2)
Quarter: 2024Q1

REPORT INFORMATION
  Report Type: Spontaneous
  Country: CN (occurrence: CN)
  Receive Date: 20240103
  Receipt Date: 20240110
  Transmission Date: 20240410
  Serious: Yes (Other)
  Sender: FDA-Public Use
  Company Number: CN-Eisai-EC-2024-156104

PATIENT
  Age: 47 Year
  Sex: Male
  Weight: 65 kg

DRUGS (4)
  1. LENVIMA [Suspect]
     Active Substance: LENVATINIB
     Indication: Hepatic cancer
     Route: 048
     Dates: start: 20230702, end: 20231122
  2. LENVIMA [Suspect]
     Active Substance: LENVATINIB
     Indication: Hepatic cancer
  3. PEMBROLIZUMAB [Concomitant]
     Active Substance: PEMBROLIZUMAB
     Indication: Hepatic cancer
     Route: 065
     Dates: start: 20230702, end: 20231122
  4. PEMBROLIZUMAB [Concomitant]
     Active Substance: PEMBROLIZUMAB
     Indication: Hepatic cancer

REACTIONS (4)
  - Platelet count decreased [Not Recovered/Not Resolved]
  - White blood cell count decreased [Unknown]
  - Neutrophil count decreased [Unknown]
  - Haemoglobin decreased [Unknown]

NARRATIVE: CASE EVENT DATE: 20230920
